FAERS Safety Report 13937485 (Version 2)
Quarter: 2017Q3

REPORT INFORMATION
  Report Type: Spontaneous
  Country: JP (occurrence: JP)
  Receive Date: 20170905
  Receipt Date: 20170923
  Transmission Date: 20171127
  Serious: No
  Sender: FDA-Public Use
  Company Number: JP-MYLANLABS-2017M1054710

PATIENT
  Sex: Male

DRUGS (4)
  1. LAXOBERON [Concomitant]
     Active Substance: SODIUM PICOSULFATE
     Indication: CONSTIPATION
     Dosage: 10 ML, QD
     Route: 048
     Dates: start: 201601
  2. DAIKENCHUTO [Concomitant]
     Active Substance: HERBALS
     Indication: DIARRHOEA
     Dosage: 15 G, QD
     Route: 048
     Dates: start: 201601
  3. ERYTHROMYCIN. [Suspect]
     Active Substance: ERYTHROMYCIN
     Indication: GASTROINTESTINAL HYPOMOTILITY
     Route: 065
  4. DAIKENCHUTO [Concomitant]
     Active Substance: HERBALS
     Indication: CONSTIPATION

REACTIONS (2)
  - Presyncope [Recovered/Resolved]
  - Diarrhoea [Recovered/Resolved]
